FAERS Safety Report 10871696 (Version 2)
Quarter: 2015Q2

REPORT INFORMATION
  Report Type: Spontaneous
  Country: US (occurrence: US)
  Receive Date: 20150226
  Receipt Date: 20150501
  Transmission Date: 20150821
  Serious: Yes (Hospitalization)
  Sender: FDA-Public Use
  Company Number: US-JNJFOC-20150219104

PATIENT
  Age: 84 Year
  Sex: Male

DRUGS (14)
  1. ALLOPURINOL. [Concomitant]
     Active Substance: ALLOPURINOL
     Route: 048
  2. IRON WITH VITAMIN C [Concomitant]
     Route: 048
  3. VITAMIN C [Concomitant]
     Active Substance: ASCORBIC ACID
     Route: 048
  4. COMPAZINE (UNSPECIFIED) [Concomitant]
     Indication: VOMITING
     Route: 048
  5. IMBRUVICA [Suspect]
     Active Substance: IBRUTINIB
     Indication: CHRONIC LYMPHOCYTIC LEUKAEMIA
     Route: 048
     Dates: start: 201502, end: 20150212
  6. RITUXIMAB [Suspect]
     Active Substance: RITUXIMAB
     Indication: CHRONIC LYMPHOCYTIC LEUKAEMIA
     Route: 042
     Dates: start: 20150211
  7. CENTRUM SILVER [Concomitant]
     Active Substance: VITAMINS
     Route: 048
  8. HYDROXYUREA. [Concomitant]
     Active Substance: HYDROXYUREA
  9. COMPAZINE (UNSPECIFIED) [Concomitant]
     Indication: NAUSEA
     Route: 048
  10. IMBRUVICA [Suspect]
     Active Substance: IBRUTINIB
     Indication: CHRONIC LYMPHOCYTIC LEUKAEMIA
     Route: 048
     Dates: start: 20140710, end: 2015
  11. COMPAZINE (UNSPECIFIED) [Concomitant]
     Indication: VOMITING
     Route: 048
  12. FLOMAX [Concomitant]
     Active Substance: TAMSULOSIN HYDROCHLORIDE
     Route: 048
  13. COMPAZINE (UNSPECIFIED) [Concomitant]
     Indication: NAUSEA
     Route: 048
  14. PANTOPRAZOLE SODIUM [Concomitant]
     Route: 048

REACTIONS (12)
  - Dizziness [Recovering/Resolving]
  - Fall [Unknown]
  - Rash [Not Recovered/Not Resolved]
  - Erosive oesophagitis [Unknown]
  - Hiatus hernia [Unknown]
  - Disease progression [Unknown]
  - Platelet count decreased [Unknown]
  - Fatigue [Not Recovered/Not Resolved]
  - Gastritis erosive [Unknown]
  - Depression [Not Recovered/Not Resolved]
  - Diarrhoea [Not Recovered/Not Resolved]
  - Upper gastrointestinal haemorrhage [Recovering/Resolving]

NARRATIVE: CASE EVENT DATE: 2015
